FAERS Safety Report 5766512-3 (Version None)
Quarter: 2008Q2

REPORT INFORMATION
  Report Type: 
  Country: None (occurrence: None)
  Receive Date: 20080612
  Receipt Date: 20080530
  Transmission Date: 20081010
  Serious: Yes (Hospitalization, Other)
  Sender: FDA-Public Use
  Company Number: US-ROCHE-537361

PATIENT
  Sex: Male
  Weight: 63.5 kg

DRUGS (6)
  1. ACCUTANE [Suspect]
     Route: 065
     Dates: start: 19990310, end: 19990810
  2. TETRACYCLIN [Concomitant]
     Indication: ACNE
     Dates: start: 19951206
  3. ERYTHROMYCIN [Concomitant]
     Indication: ACNE
     Dates: start: 19990309
  4. BENZAMYCIN [Concomitant]
     Dates: start: 19961210
  5. BENZAMYCIN [Concomitant]
     Dates: start: 19961210
  6. RETIN-A [Concomitant]
     Dates: start: 19981005

REACTIONS (10)
  - ABDOMINAL PAIN [None]
  - ANOREXIA [None]
  - ARTHRITIS REACTIVE [None]
  - COLITIS [None]
  - COLITIS ULCERATIVE [None]
  - DEHYDRATION [None]
  - EMOTIONAL DISTRESS [None]
  - INFLAMMATORY BOWEL DISEASE [None]
  - INTESTINAL OBSTRUCTION [None]
  - WEIGHT DECREASED [None]
